FAERS Safety Report 9524981 (Version 1)
Quarter: 2013Q1

REPORT INFORMATION
  Report Type: Spontaneous
  Country: US (occurrence: None)
  Receive Date: 20130313
  Receipt Date: 20130313
  Transmission Date: 20140127
  Serious: No
  Sender: FDA-Public Use
  Company Number: 1000037426

PATIENT
  Age: 50 Year
  Sex: Female

DRUGS (6)
  1. SAVELLA [Suspect]
     Indication: FIBROMYALGIA
     Dosage: 12.5 MG (12.5 MG, 1 IN 1 D), ORAL
     Route: 048
     Dates: start: 20120621, end: 20120621
  2. SAVELLA [Suspect]
     Dosage: 25 MG (12.5 MG, 1 IN 1 D), ORAL
     Route: 048
     Dates: start: 20120622, end: 20120622
  3. RANITIDINE (RANITIDINE) (RANITIDINE) [Concomitant]
  4. VIVELLE-DOT (ESTRADIOL) (ESTRADIOL) [Concomitant]
  5. DOVONEX (CALCIPOTRIOL) (CALCIPOTRIOL) [Concomitant]
  6. TOPICAL STEROIDS (NOS) (TOPICAL STEROIDS (NOS)) (TOPICAL STEROIDS (NOS)) [Concomitant]

REACTIONS (2)
  - Affect lability [None]
  - Blood pressure decreased [None]
